FAERS Safety Report 14630909 (Version 2)
Quarter: 2018Q2

REPORT INFORMATION
  Report Type: Spontaneous
  Country: US (occurrence: US)
  Receive Date: 20180313
  Receipt Date: 20180604
  Transmission Date: 20180711
  Serious: Yes (Other)
  Sender: FDA-Public Use
  Company Number: US-BAYER-2018-046286

PATIENT
  Age: 38 Year
  Sex: Female
  Weight: 69.84 kg

DRUGS (2)
  1. GADAVIST [Suspect]
     Active Substance: GADOBUTROL
     Indication: INTERVERTEBRAL DISC DEGENERATION
     Dosage: 7 ML, ONCE
     Route: 042
     Dates: start: 20160308, end: 20160308
  2. GADAVIST [Suspect]
     Active Substance: GADOBUTROL
     Indication: NUCLEAR MAGNETIC RESONANCE IMAGING

REACTIONS (4)
  - Vomiting [Recovered/Resolved]
  - Eye swelling [Recovered/Resolved]
  - Nausea [Recovered/Resolved]
  - Hemianaesthesia [Recovered/Resolved]

NARRATIVE: CASE EVENT DATE: 20160308
